FAERS Safety Report 7013368-7 (Version None)
Quarter: 2010Q3

REPORT INFORMATION
  Report Type: 
  Country: None (occurrence: None)
  Receive Date: 20100924
  Receipt Date: 20100914
  Transmission Date: 20110219
  Serious: Yes (Other)
  Sender: FDA-Public Use
  Company Number: US-ABBOTT-10P-163-0671220-00

PATIENT
  Sex: Male
  Weight: 83.99 kg

DRUGS (8)
  1. HUMIRA [Suspect]
     Indication: PSORIATIC ARTHROPATHY
     Dates: start: 20070201
  2. FOSAMAX [Concomitant]
     Indication: OSTEOPOROSIS
  3. OMEPRAZOLE [Concomitant]
     Indication: GASTROOESOPHAGEAL REFLUX DISEASE
  4. TRIAMTERENE AND HYDROCHLOROTHIAZIDE [Concomitant]
     Indication: HYPERTENSION
     Dosage: 35.5/25 MG
  5. MULTI-VITAMIN [Concomitant]
     Indication: PRODUCT USED FOR UNKNOWN INDICATION
  6. SUPPLEMENTS [Concomitant]
     Indication: PRODUCT USED FOR UNKNOWN INDICATION
  7. CLOBETASOL PROPIONATE [Concomitant]
     Indication: PSORIASIS
  8. PROCTOZONE CREAM [Concomitant]
     Indication: RASH

REACTIONS (8)
  - CATARACT [None]
  - DEVICE MALFUNCTION [None]
  - DYSPNOEA [None]
  - HYPERTENSION [None]
  - INCORRECT DOSE ADMINISTERED [None]
  - INJURY ASSOCIATED WITH DEVICE [None]
  - NASAL SEPTUM DEVIATION [None]
  - PSORIASIS [None]
